FAERS Safety Report 25679525 (Version 1)
Quarter: 2025Q3

REPORT INFORMATION
  Report Type: Spontaneous
  Country: EU (occurrence: EU)
  Receive Date: 20250814
  Receipt Date: 20250814
  Transmission Date: 20251020
  Serious: Yes (Hospitalization)
  Sender: ROCHE
  Company Number: EU-ROCHE-2290685

PATIENT
  Age: 64 Year
  Sex: Male

DRUGS (8)
  1. MYCOPHENOLATE MOFETIL [Suspect]
     Active Substance: MYCOPHENOLATE MOFETIL
     Indication: Immunosuppression
     Route: 065
  2. PREDNISOLONE [Suspect]
     Active Substance: PREDNISOLONE
     Indication: Immunosuppression
     Route: 065
  3. CYCLOSPORINE [Suspect]
     Active Substance: CYCLOSPORINE
     Indication: Immunosuppression
     Route: 065
  4. CEFTRIAXONE [Concomitant]
     Active Substance: CEFTRIAXONE
  5. SULFAMETHOXAZOLE\TRIMETHOPRIM [Concomitant]
     Active Substance: SULFAMETHOXAZOLE\TRIMETHOPRIM
  6. PYRIMETHAMINE [Concomitant]
     Active Substance: PYRIMETHAMINE
  7. METRONIDAZOLE [Concomitant]
     Active Substance: METRONIDAZOLE
  8. SULFADIAZINE [Concomitant]
     Active Substance: SULFADIAZINE

REACTIONS (4)
  - Tularaemia [Recovered/Resolved]
  - Respiratory distress [Recovered/Resolved]
  - Lymphadenopathy mediastinal [Recovered/Resolved]
  - Pleural effusion [Recovered/Resolved]
